FAERS Safety Report 12146415 (Version 1)
Quarter: 2016Q1

REPORT INFORMATION
  Report Type: Spontaneous
  Country: BE (occurrence: BE)
  Receive Date: 20160304
  Receipt Date: 20160304
  Transmission Date: 20160526
  Serious: Yes (Other)
  Sender: FDA-Public Use
  Company Number: BE-SEBELA IRELAND LIMITED-2016SEB00022

PATIENT
  Age: 34 Year
  Sex: Male

DRUGS (3)
  1. AZATHIOPRINE. [Suspect]
     Active Substance: AZATHIOPRINE
     Dosage: 2 MG/KG, UNK
     Route: 065
     Dates: start: 1998, end: 1999
  2. AZATHIOPRINE. [Suspect]
     Active Substance: AZATHIOPRINE
     Dosage: 150 MG, 1X/DAY
     Route: 065
     Dates: end: 201109
  3. AZATHIOPRINE. [Suspect]
     Active Substance: AZATHIOPRINE
     Dosage: 2 MG, UNK
     Route: 065
     Dates: start: 2005

REACTIONS (4)
  - Thrombocytopenia [Unknown]
  - Nodular regenerative hyperplasia [Unknown]
  - Varices oesophageal [Unknown]
  - Portal hypertension [Unknown]

NARRATIVE: CASE EVENT DATE: 201109
